FAERS Safety Report 7780165-4 (Version None)
Quarter: 2011Q3

REPORT INFORMATION
  Report Type: 
  Country: None (occurrence: None)
  Receive Date: 20110927
  Receipt Date: 20110531
  Transmission Date: 20111222
  Serious: No
  Sender: FDA-Public Use
  Company Number: US-ASTRAZENECA-2011SE33685

PATIENT
  Age: 68 Year
  Sex: Male
  Weight: 97.5 kg

DRUGS (1)
  1. SEROQUEL [Suspect]
     Indication: OFF LABEL USE
     Route: 048
     Dates: start: 20080101

REACTIONS (2)
  - INSOMNIA [None]
  - OFF LABEL USE [None]
